FAERS Safety Report 20022847 (Version 1)
Quarter: 2021Q4

REPORT INFORMATION
  Report Type: Report from Study
  Country: US (occurrence: US)
  Receive Date: 20211102
  Receipt Date: 20211102
  Transmission Date: 20220303
  Serious: Yes (Other)
  Sender: FDA-Public Use
  Company Number: US-NOVARTISPH-NVSC2021US243934

PATIENT
  Sex: Female

DRUGS (1)
  1. GILENYA [Suspect]
     Active Substance: FINGOLIMOD HYDROCHLORIDE
     Indication: Product used for unknown indication
     Dosage: UNK UNK, QOD
     Route: 065

REACTIONS (6)
  - Cytomegalovirus infection [Unknown]
  - White blood cell count decreased [Unknown]
  - Gait disturbance [Unknown]
  - Viral infection [Unknown]
  - Pyrexia [Unknown]
  - Off label use [Unknown]
